FAERS Safety Report 14642282 (Version 1)
Quarter: 2018Q1

REPORT INFORMATION
  Report Type: Spontaneous
  Country: LT (occurrence: LT)
  Receive Date: 20180315
  Receipt Date: 20180315
  Transmission Date: 20180509
  Serious: Yes (Hospitalization)
  Sender: FDA-Public Use
  Company Number: LT-ASTRAZENECA-2018SE30290

PATIENT
  Age: 22125 Day
  Sex: Male
  Weight: 109 kg

DRUGS (4)
  1. FORXIGA [Suspect]
     Active Substance: DAPAGLIFLOZIN
     Indication: TYPE 2 DIABETES MELLITUS
     Route: 048
     Dates: start: 20180216, end: 20180306
  2. METFORALIS [Concomitant]
     Indication: TYPE 2 DIABETES MELLITUS
  3. TRAJENTA [Concomitant]
     Active Substance: LINAGLIPTIN
     Indication: TYPE 2 DIABETES MELLITUS
     Dates: start: 20180116, end: 20180216
  4. TRAJENTA [Concomitant]
     Active Substance: LINAGLIPTIN
     Indication: TYPE 2 DIABETES MELLITUS
     Dates: start: 20180216, end: 20180306

REACTIONS (5)
  - Hepatic function abnormal [Recovering/Resolving]
  - Nausea [Recovering/Resolving]
  - Blood glucose abnormal [Recovering/Resolving]
  - Pollakiuria [Recovering/Resolving]
  - Thirst [Recovering/Resolving]

NARRATIVE: CASE EVENT DATE: 20180216
